FAERS Safety Report 13784299 (Version 3)
Quarter: 2018Q3

REPORT INFORMATION
  Report Type: Spontaneous
  Country: PL (occurrence: PL)
  Receive Date: 20170724
  Receipt Date: 20180727
  Transmission Date: 20181010
  Serious: Yes (Hospitalization, Other)
  Sender: FDA-Public Use
  Company Number: PHHY2017PL106073

PATIENT
  Age: 51 Year
  Sex: Male

DRUGS (6)
  1. DOCETAXEL. [Suspect]
     Active Substance: DOCETAXEL
     Indication: TONGUE CARCINOMA STAGE 0
     Dosage: 140 MG, UNK
     Route: 065
  2. DOCETAXEL. [Suspect]
     Active Substance: DOCETAXEL
     Indication: LYMPHADENOPATHY
  3. FLUOROURACIL. [Suspect]
     Active Substance: FLUOROURACIL
     Indication: TONGUE CARCINOMA STAGE 0
  4. CISPLATIN. [Suspect]
     Active Substance: CISPLATIN
     Indication: LYMPHADENOPATHY
  5. CISPLATIN. [Suspect]
     Active Substance: CISPLATIN
     Indication: TONGUE CARCINOMA STAGE 0
     Dosage: 180 MG, UNK
     Route: 065
  6. FLUOROURACIL. [Suspect]
     Active Substance: FLUOROURACIL
     Indication: LYMPHADENOPATHY
     Dosage: 1800 MG/DAY BY CONTINUOUS INFUSION OVER 96 HOURS
     Route: 065

REACTIONS (6)
  - Nephropathy toxic [Unknown]
  - Drug ineffective [Unknown]
  - Acute kidney injury [Recovering/Resolving]
  - Oliguria [Unknown]
  - Lymphadenopathy [Unknown]
  - Disease progression [Unknown]
